FAERS Safety Report 12683046 (Version 1)
Quarter: 2016Q3

REPORT INFORMATION
  Report Type: Spontaneous
  Country: US (occurrence: None)
  Receive Date: 20160824
  Receipt Date: 20160824
  Transmission Date: 20161109
  Serious: No
  Sender: FDA-Public Use
  Company Number: None

PATIENT

DRUGS (2)
  1. XYLOCAINE-MPF [Suspect]
     Active Substance: LIDOCAINE HYDROCHLORIDE
     Dosage: INJECTABLE, 2% SINGLE DOSE VIAL
  2. XYLOCAINE-MPF [Suspect]
     Active Substance: LIDOCAINE HYDROCHLORIDE
     Dosage: INJECTABLE, 1%, SINGLE DOSE VIAL, 5 ML

REACTIONS (1)
  - Product packaging confusion [None]
